FAERS Safety Report 9305376 (Version 1)
Quarter: 2013Q1

REPORT INFORMATION
  Report Type: Spontaneous
  Country: US (occurrence: None)
  Receive Date: 20130115
  Receipt Date: 20130115
  Transmission Date: 20140127
  Serious: Yes (Hospitalization)
  Sender: FDA-Public Use
  Company Number: 142081

PATIENT
  Age: 58 Year
  Sex: Female
  Weight: 48 kg

DRUGS (2)
  1. CYTARABINE [Suspect]
     Indication: ACUTE MYELOID LEUKAEMIA
     Dosage: UID/QD
     Route: 042
     Dates: start: 20120811, end: 20120817
  2. DAUNORUBICIN HCL [Suspect]
     Indication: ACUTE MYELOID LEUKAEMIA
     Dosage: UID/QD
     Route: 042
     Dates: start: 20120811, end: 20120813

REACTIONS (4)
  - Small intestinal obstruction [None]
  - Disease recurrence [None]
  - Adhesion [None]
  - Intestinal ulcer [None]
